FAERS Safety Report 5572608-1 (Version None)
Quarter: 2007Q4

REPORT INFORMATION
  Report Type: 
  Country: None (occurrence: None)
  Receive Date: 20071130
  Receipt Date: 20061214
  Transmission Date: 20080405
  Serious: Yes (Other)
  Sender: FDA-Public Use
  Company Number: WAES 0507USA00156

PATIENT
  Age: 60 Year
  Sex: Female

DRUGS (9)
  1. FOSAMAX [Suspect]
     Indication: OSTEOPOROSIS
     Dosage: PO
     Route: 048
     Dates: start: 19670101
  2. CARDIZEM [Concomitant]
  3. SYNTHROID [Concomitant]
  4. ZOLOFT [Concomitant]
  5. ASPIRIN [Concomitant]
  6. DIGOXIN [Concomitant]
  7. HYDROCHLOROTHIAZIDE [Concomitant]
  8. PREDNISONE TAB [Concomitant]
  9. WARFARIN SODIUM [Concomitant]

REACTIONS (1)
  - OSTEONECROSIS [None]
